FAERS Safety Report 12488643 (Version 1)
Quarter: 2016Q2

REPORT INFORMATION
  Report Type: Spontaneous
  Country: US (occurrence: US)
  Receive Date: 20160622
  Receipt Date: 20160622
  Transmission Date: 20160815
  Serious: No
  Sender: FDA-Public Use
  Company Number: US-CONCORDIA PHARMACEUTICALS INC.-CO-PR-US-2016-004

PATIENT
  Age: 46 Year
  Sex: Female

DRUGS (1)
  1. PARNATE [Suspect]
     Active Substance: TRANYLCYPROMINE SULFATE
     Indication: BIPOLAR DISORDER
     Route: 048

REACTIONS (3)
  - Hypersomnia [Recovering/Resolving]
  - Apathy [Recovering/Resolving]
  - Crying [Recovering/Resolving]

NARRATIVE: CASE EVENT DATE: 201602
